FAERS Safety Report 4856286-2 (Version None)
Quarter: 2005Q4

REPORT INFORMATION
  Report Type: 
  Country: None (occurrence: None)
  Receive Date: 20051219
  Receipt Date: 20051214
  Transmission Date: 20060501
  Serious: Yes (Death)
  Sender: FDA-Public Use
  Company Number: HK-BRACCO-BRO-009665

PATIENT
  Age: 59 Year
  Sex: Female

DRUGS (1)
  1. IOPAMIRO [Suspect]
     Route: 042

REACTIONS (1)
  - DEATH [None]
